FAERS Safety Report 7241814-2 (Version None)
Quarter: 2011Q1

REPORT INFORMATION
  Report Type: 
  Country: None (occurrence: None)
  Receive Date: 20110124
  Receipt Date: 20110110
  Transmission Date: 20110831
  Serious: Yes (Other)
  Sender: FDA-Public Use
  Company Number: IT-GENENTECH-312504

PATIENT
  Age: 67 Year
  Sex: Male

DRUGS (2)
  1. RANIBIZUMAB [Suspect]
     Indication: DIABETIC RETINAL OEDEMA
     Dosage: 0.5 MG, UNKNOWN
     Route: 031
  2. ORAL HYPOGLYCAEMIC AGENT [Concomitant]
     Indication: PRODUCT USED FOR UNKNOWN INDICATION

REACTIONS (9)
  - RETINAL VEIN OCCLUSION [None]
  - DIABETIC RETINAL OEDEMA [None]
  - RETINAL PALLOR [None]
  - OPTIC DISC DISORDER [None]
  - RETINAL HAEMORRHAGE [None]
  - VISUAL ACUITY REDUCED [None]
  - OPTIC ISCHAEMIC NEUROPATHY [None]
  - RETINAL ARTERY OCCLUSION [None]
  - RETINAL ISCHAEMIA [None]
